FAERS Safety Report 4445888-3 (Version None)
Quarter: 2004Q3

REPORT INFORMATION
  Report Type: 
  Country: None (occurrence: None)
  Receive Date: 20040907
  Receipt Date: 20040824
  Transmission Date: 20050211
  Serious: Yes (Death, Hospitalization, Other)
  Sender: FDA-Public Use
  Company Number: 2004-BP-07127AU

PATIENT
  Sex: Male

DRUGS (2)
  1. MOBIC [Suspect]
     Dosage: 15 MG (15 MG, 15 MG ONCE DAILY) PO
     Route: 048
     Dates: start: 20021126, end: 20021204
  2. ENALAPRIL MALEATE [Concomitant]

REACTIONS (3)
  - LUNG NEOPLASM MALIGNANT [None]
  - OEDEMA [None]
  - RENAL FAILURE ACUTE [None]
